FAERS Safety Report 5015565-9 (Version None)
Quarter: 2006Q2

REPORT INFORMATION
  Report Type: 
  Country: None (occurrence: None)
  Receive Date: 20060601
  Receipt Date: 20060524
  Transmission Date: 20061013
  Serious: Yes (Life-Threatening)
  Sender: FDA-Public Use
  Company Number: PR-AVENTIS-200615570GDDC

PATIENT
  Age: 71 Year
  Sex: Male
  Weight: 89.5 kg

DRUGS (9)
  1. INSULIN GLARGINE [Suspect]
     Dosage: DOSE UNIT: UNITS
     Route: 058
  2. GLIMEPIRIDE [Suspect]
  3. REGULAR INSULIN [Suspect]
     Dosage: DOSE UNIT: UNITS
     Route: 058
  4. ROSIGLITAZONE [Suspect]
  5. LISINOPRIL [Concomitant]
  6. ZOCOR [Concomitant]
  7. ASPIRIN [Concomitant]
  8. MOXIFLOXACIN HCL [Concomitant]
  9. FELODIPINE [Concomitant]

REACTIONS (4)
  - HYPERHIDROSIS [None]
  - HYPOGLYCAEMIC COMA [None]
  - LOSS OF CONSCIOUSNESS [None]
  - NASOPHARYNGITIS [None]
